FAERS Safety Report 7536422-X (Version None)
Quarter: 2011Q2

REPORT INFORMATION
  Report Type: 
  Country: None (occurrence: None)
  Receive Date: 20110609
  Receipt Date: 20110601
  Transmission Date: 20111010
  Serious: Yes (Hospitalization)
  Sender: FDA-Public Use
  Company Number: PT-US-EMD SERONO, INC.-7062875

PATIENT
  Sex: Male

DRUGS (1)
  1. SAIZEN [Suspect]

REACTIONS (1)
  - INTRACRANIAL PRESSURE INCREASED [None]
